FAERS Safety Report 15556048 (Version 2)
Quarter: 2019Q1

REPORT INFORMATION
  Report Type: Report from Study
  Country: FR (occurrence: FR)
  Receive Date: 20181026
  Receipt Date: 20190212
  Transmission Date: 20190417
  Serious: Yes (Hospitalization)
  Sender: FDA-Public Use
  Company Number: FR-B.I. PHARMACEUTICALS,INC./RIDGEFIELD-2018-BI-044817

PATIENT
  Age: 50 Year
  Sex: Male

DRUGS (3)
  1. PEMBROLIZUMAB. [Suspect]
     Active Substance: PEMBROLIZUMAB
     Indication: PLEURAL MESOTHELIOMA
     Route: 042
     Dates: start: 20180829, end: 20180829
  2. NINTEDANIB [Suspect]
     Active Substance: NINTEDANIB
     Dosage: MORNING
     Route: 048
     Dates: start: 20181010, end: 20181017
  3. NINTEDANIB [Suspect]
     Active Substance: NINTEDANIB
     Indication: PLEURAL MESOTHELIOMA
     Route: 048
     Dates: start: 20180829, end: 20180905

REACTIONS (4)
  - Colitis [Recovered/Resolved]
  - Interstitial lung disease [Recovered/Resolved]
  - Diarrhoea [Not Recovered/Not Resolved]
  - Dyspnoea [Not Recovered/Not Resolved]

NARRATIVE: CASE EVENT DATE: 20180905
